FAERS Safety Report 7564480-5 (Version None)
Quarter: 2011Q2

REPORT INFORMATION
  Report Type: 
  Country: None (occurrence: None)
  Receive Date: 20110622
  Receipt Date: 20110618
  Transmission Date: 20111010
  Serious: Yes (Life-Threatening, Hospitalization)
  Sender: FDA-Public Use
  Company Number: PHHY2011US54666

PATIENT
  Sex: Male

DRUGS (2)
  1. GLEEVEC [Suspect]
     Indication: CHRONIC MYELOID LEUKAEMIA
     Dosage: 400 MG,DAILY
     Route: 048
     Dates: start: 20091125
  2. VOTRIENT [Suspect]
     Dosage: UNK
     Dates: start: 20110301

REACTIONS (3)
  - CARDIAC DISORDER [None]
  - PULMONARY OEDEMA [None]
  - BRADYCARDIA [None]
